FAERS Safety Report 6461898-9 (Version None)
Quarter: 2009Q4

REPORT INFORMATION
  Report Type: 
  Country: None (occurrence: None)
  Receive Date: 20091130
  Receipt Date: 20091124
  Transmission Date: 20100525
  Serious: Yes (Death, Hospitalization)
  Sender: FDA-Public Use
  Company Number: PHHY2009US51497

PATIENT
  Age: 54 Year
  Sex: Male

DRUGS (11)
  1. BASILIXIMAB [Suspect]
     Indication: RENAL TRANSPLANT
     Dosage: UNK
  2. BASILIXIMAB [Suspect]
     Indication: LIVER TRANSPLANT
  3. SOLU-MEDROL [Concomitant]
     Indication: RENAL TRANSPLANT
  4. SOLU-MEDROL [Concomitant]
     Indication: LIVER TRANSPLANT
  5. HEPATITIS B IMMUNE GLOBULIN (HUMAN) [Concomitant]
     Indication: LIVER TRANSPLANT
  6. HEPATITIS B IMMUNE GLOBULIN (HUMAN) [Concomitant]
     Indication: RENAL TRANSPLANT
  7. TACROLIMUS [Concomitant]
     Indication: RENAL TRANSPLANT
  8. TACROLIMUS [Concomitant]
     Indication: LIVER TRANSPLANT
  9. MYCOPHENOLATE MOFETIL [Concomitant]
     Indication: RENAL TRANSPLANT
  10. MYCOPHENOLATE MOFETIL [Concomitant]
     Indication: LIVER TRANSPLANT
  11. METHYLPREDNISOLONE [Concomitant]

REACTIONS (21)
  - ABSCESS BACTERIAL [None]
  - ACUTE RESPIRATORY FAILURE [None]
  - CYTOMEGALOVIRUS COLITIS [None]
  - CYTOMEGALOVIRUS HEPATITIS [None]
  - CYTOMEGALOVIRUS INFECTION [None]
  - ENTEROCOCCAL BACTERAEMIA [None]
  - HEPATIC INFILTRATION EOSINOPHILIC [None]
  - HEPATIC NECROSIS [None]
  - INFLAMMATION [None]
  - KIDNEY FIBROSIS [None]
  - MULTI-ORGAN FAILURE [None]
  - MYOCARDIAL INFARCTION [None]
  - OLIGURIA [None]
  - PNEUMONIA [None]
  - PSEUDOMONAL BACTERAEMIA [None]
  - RENAL ARTERIOSCLEROSIS [None]
  - RENAL IMPAIRMENT [None]
  - SEPSIS [None]
  - TRACHEOSTOMY [None]
  - TRANSPLANT REJECTION [None]
  - URINARY CASTS [None]
